FAERS Safety Report 26092020 (Version 1)
Quarter: 2025Q4

REPORT INFORMATION
  Report Type: Spontaneous
  Country: EU (occurrence: EU)
  Receive Date: 20251126
  Receipt Date: 20251126
  Transmission Date: 20260117
  Serious: Yes (Other)
  Sender: REGENERON
  Company Number: EU-BAYER-2025A155632

PATIENT
  Age: 70 Year

DRUGS (2)
  1. EYLEA HD [Suspect]
     Active Substance: AFLIBERCEPT
     Indication: Age-related macular degeneration
     Dosage: UNK, Q6W, 114.3 MG/ML
  2. EYLEA HD [Suspect]
     Active Substance: AFLIBERCEPT
     Dosage: UNK, Q4W, 114.3 MG/ML

REACTIONS (2)
  - Subretinal fluid [Recovered/Resolved]
  - Inappropriate schedule of product administration [Unknown]
